FAERS Safety Report 7525604-9 (Version None)
Quarter: 2011Q2

REPORT INFORMATION
  Report Type: 
  Country: None (occurrence: None)
  Receive Date: 20110606
  Receipt Date: 20110523
  Transmission Date: 20111010
  Serious: Yes (Other)
  Sender: FDA-Public Use
  Company Number: PHHY2011FR16386

PATIENT
  Sex: Female
  Weight: 55 kg

DRUGS (5)
  1. CORTICOSTEROIDS [Suspect]
     Indication: SPONDYLITIS
     Dates: start: 20110113
  2. VOLTAREN [Concomitant]
     Dates: start: 20100422
  3. TRAMADOL HCL [Concomitant]
     Dates: start: 20100601
  4. ENBREL [Concomitant]
     Indication: SPONDYLITIS
     Dates: start: 20100427
  5. ZOLEDRONIC ACID [Suspect]
     Indication: OSTEOPOROTIC FRACTURE
     Dosage: 5 MG, UNK
     Dates: start: 20110114

REACTIONS (7)
  - TINNITUS [None]
  - DIZZINESS [None]
  - HYPERTENSION [None]
  - RED BLOOD CELL SEDIMENTATION RATE DECREASED [None]
  - C-REACTIVE PROTEIN DECREASED [None]
  - HEADACHE [None]
  - VOMITING [None]
